FAERS Safety Report 7491336-9 (Version None)
Quarter: 2011Q2

REPORT INFORMATION
  Report Type: 
  Country: None (occurrence: None)
  Receive Date: 20110518
  Receipt Date: 20110518
  Transmission Date: 20111010
  Serious: No
  Sender: FDA-Public Use
  Company Number: None

PATIENT
  Age: 21 Year
  Sex: Male
  Weight: 70.3075 kg

DRUGS (1)
  1. PAXIL [Suspect]
     Indication: OBSESSIVE-COMPULSIVE DISORDER
     Dosage: 60MG ONCE A DAY PO
     Route: 048
     Dates: start: 20091115, end: 20110220

REACTIONS (2)
  - GENITAL HYPOAESTHESIA [None]
  - LIBIDO DECREASED [None]
